FAERS Safety Report 19925133 (Version 2)
Quarter: 2021Q4

REPORT INFORMATION
  Report Type: Report from Study
  Country: JP (occurrence: JP)
  Receive Date: 20211006
  Receipt Date: 20211129
  Transmission Date: 20220303
  Serious: Yes (Hospitalization)
  Sender: FDA-Public Use
  Company Number: JP-BIOGEN-2021BI01055469

PATIENT
  Age: 61 Year
  Sex: Female
  Weight: 40 kg

DRUGS (14)
  1. TECFIDERA [Suspect]
     Active Substance: DIMETHYL FUMARATE
     Indication: Primary progressive multiple sclerosis
     Route: 048
     Dates: start: 20180315, end: 20180328
  2. TECFIDERA [Suspect]
     Active Substance: DIMETHYL FUMARATE
     Route: 048
     Dates: start: 20180329
  3. TEGRETOL [Concomitant]
     Active Substance: CARBAMAZEPINE
     Indication: Trigeminal neuralgia
     Route: 048
  4. CYMBALTA [Concomitant]
     Active Substance: DULOXETINE HYDROCHLORIDE
     Indication: Trigeminal neuralgia
     Route: 048
     Dates: start: 20180829, end: 20181002
  5. CELECOXIB [Concomitant]
     Active Substance: CELECOXIB
     Indication: Trigeminal neuralgia
     Route: 048
     Dates: start: 20181003, end: 20181120
  6. MIRTAZAPINE [Concomitant]
     Active Substance: MIRTAZAPINE
     Indication: Trigeminal neuralgia
     Route: 048
     Dates: start: 20181003, end: 20181120
  7. TRAMADOL [Concomitant]
     Active Substance: TRAMADOL
     Indication: Trigeminal neuralgia
     Route: 048
     Dates: start: 20181121, end: 20190319
  8. TRAMADOL [Concomitant]
     Active Substance: TRAMADOL
     Route: 048
     Dates: start: 20190320, end: 20190414
  9. NOVAMIN [Concomitant]
     Indication: Trigeminal neuralgia
     Route: 048
     Dates: start: 20181121, end: 20190203
  10. NOVAMIN [Concomitant]
     Route: 048
     Dates: start: 20190320, end: 20190414
  11. TRAMADOL HYDROCHLORIDE [Concomitant]
     Active Substance: TRAMADOL HYDROCHLORIDE
     Indication: Trigeminal neuralgia
     Route: 048
     Dates: start: 20190204, end: 20190303
  12. SYMPROIC [Concomitant]
     Active Substance: NALDEMEDINE
     Indication: Trigeminal neuralgia
     Route: 048
     Dates: start: 20190320, end: 20190414
  13. MIROGABALIN BESYLATE [Concomitant]
     Active Substance: MIROGABALIN BESYLATE
     Indication: Trigeminal neuralgia
     Route: 048
     Dates: start: 20190722, end: 20191209
  14. MIROGABALIN BESYLATE [Concomitant]
     Active Substance: MIROGABALIN BESYLATE
     Route: 048
     Dates: start: 20191210

REACTIONS (2)
  - Cerebral infarction [Recovered/Resolved]
  - White blood cell count decreased [Recovered/Resolved]

NARRATIVE: CASE EVENT DATE: 20180502
